FAERS Safety Report 4912779-0 (Version None)
Quarter: 2006Q1

REPORT INFORMATION
  Report Type: 
  Country: None (occurrence: None)
  Receive Date: 20060215
  Receipt Date: 20060205
  Transmission Date: 20060701
  Serious: Yes (Hospitalization)
  Sender: FDA-Public Use
  Company Number: DE-ROCHE-435274

PATIENT
  Sex: Female

DRUGS (1)
  1. INTERFERON ALFA-2A [Suspect]
     Indication: HEPATITIS C
     Route: 065

REACTIONS (7)
  - BACK PAIN [None]
  - BACTERIAL INFECTION [None]
  - BLOOD TEST ABNORMAL [None]
  - FACIAL PAIN [None]
  - HEADACHE [None]
  - PAIN IN JAW [None]
  - UROGENITAL DISORDER [None]
